FAERS Safety Report 5299368-6 (Version None)
Quarter: 2007Q2

REPORT INFORMATION
  Report Type: 
  Country: None (occurrence: None)
  Receive Date: 20070411
  Receipt Date: 20070411
  Transmission Date: 20071010
  Serious: Yes (Life-Threatening, Hospitalization)
  Sender: FDA-Public Use
  Company Number: None

PATIENT
  Age: 85 Year
  Sex: Female
  Weight: 79.2 kg

DRUGS (17)
  1. LEVOFLOXACIN [Suspect]
     Indication: URINARY TRACT INFECTION
     Dosage: 500 MG OTO PO
     Route: 048
     Dates: start: 20061201
  2. SYNTHROID [Concomitant]
  3. LASIX [Concomitant]
  4. LEXOPRO [Concomitant]
  5. NAMENDA [Concomitant]
  6. ARICEPT [Concomitant]
  7. FOSAMAX [Concomitant]
  8. MICARDIS [Concomitant]
  9. DILTIAZEM [Concomitant]
  10. DIAMOX [Concomitant]
  11. AMBIEN [Concomitant]
  12. VITAMIN [Concomitant]
  13. ASPIRIN [Concomitant]
  14. K SUPPLEMENT [Concomitant]
  15. XALATAN [Concomitant]
  16. ALPHAGAN [Concomitant]
  17. PILOCARPINE [Concomitant]

REACTIONS (3)
  - GRAND MAL CONVULSION [None]
  - POSTICTAL STATE [None]
  - RESPIRATORY ARREST [None]
